FAERS Safety Report 4660304-4 (Version None)
Quarter: 2005Q2

REPORT INFORMATION
  Report Type: 
  Country: None (occurrence: None)
  Receive Date: 20050511
  Receipt Date: 20050511
  Transmission Date: 20051028
  Serious: Yes (Other)
  Sender: FDA-Public Use
  Company Number: None

PATIENT
  Sex: Female
  Weight: 4.9442 kg

DRUGS (1)
  1. CEREBYX [Suspect]
     Indication: CONVULSION

REACTIONS (4)
  - SCREAMING [None]
  - SELF INJURIOUS BEHAVIOUR [None]
  - SENSORY DISTURBANCE [None]
  - VERBAL ABUSE [None]
